FAERS Safety Report 16519311 (Version 1)
Quarter: 2019Q3

REPORT INFORMATION
  Report Type: Spontaneous
  Country: US (occurrence: US)
  Receive Date: 20190702
  Receipt Date: 20190702
  Transmission Date: 20191004
  Serious: No
  Sender: FDA-Public Use
  Company Number: US-GALDERMA-US18038620

PATIENT
  Age: 27 Year
  Sex: Female

DRUGS (1)
  1. DIFFERIN GEL [Suspect]
     Active Substance: ADAPALENE
     Indication: ACNE
     Dosage: 0.1%
     Route: 061
     Dates: start: 201807

REACTIONS (5)
  - Erythema [Not Recovered/Not Resolved]
  - Application site bruise [Not Recovered/Not Resolved]
  - Skin swelling [Not Recovered/Not Resolved]
  - Dry skin [Not Recovered/Not Resolved]
  - Pain of skin [Not Recovered/Not Resolved]
